FAERS Safety Report 16343964 (Version 2)
Quarter: 2019Q2

REPORT INFORMATION
  Report Type: Spontaneous
  Country: US (occurrence: US)
  Receive Date: 20190522
  Receipt Date: 20190606
  Transmission Date: 20190711
  Serious: No
  Sender: FDA-Public Use
  Company Number: US-LUNDBECK-DKLU2078640

PATIENT
  Age: 8 Year
  Sex: Male
  Weight: 31 kg

DRUGS (3)
  1. SABRIL [Suspect]
     Active Substance: VIGABATRIN
     Indication: INFANTILE SPASMS
     Route: 048
     Dates: start: 201902
  2. SABRIL [Suspect]
     Active Substance: VIGABATRIN
     Indication: SEIZURE
     Route: 048
     Dates: start: 201902
  3. SABRIL [Suspect]
     Active Substance: VIGABATRIN
     Route: 065
     Dates: start: 201308

REACTIONS (2)
  - Ear haemorrhage [Unknown]
  - Eustachian tube dysfunction [Unknown]

NARRATIVE: CASE EVENT DATE: 20190502
